FAERS Safety Report 6593159-1 (Version None)
Quarter: 2010Q1

REPORT INFORMATION
  Report Type: 
  Country: None (occurrence: None)
  Receive Date: 20100222
  Receipt Date: 20100211
  Transmission Date: 20100710
  Serious: Yes (Other)
  Sender: FDA-Public Use
  Company Number: PHHY2009US56173

PATIENT
  Sex: Female
  Weight: 113.38 kg

DRUGS (10)
  1. TASIGNA [Suspect]
     Indication: GASTROINTESTINAL STROMAL TUMOUR
     Dosage: 400 MG, BID
     Route: 048
     Dates: start: 20091202
  2. TASIGNA [Suspect]
     Dosage: 400 MG, Q12H
     Route: 048
     Dates: start: 20091126
  3. METFORMIN [Concomitant]
     Indication: DIABETES MELLITUS
     Dosage: 500 MG, QD
  4. HYDROCHLOROTHIAZIDE [Concomitant]
     Indication: FLUID RETENTION
     Dosage: 12.5 MG, QD
     Dates: start: 20091012
  5. ASPIRIN [Concomitant]
     Dosage: 8 MG, TID
     Dates: start: 20091012
  6. POTASSIUM [Concomitant]
     Dosage: 10 MG, TID
     Dates: start: 20091012
  7. COLACE [Concomitant]
     Indication: CONSTIPATION
  8. MILK OF MAGNESIA TAB [Concomitant]
     Indication: CONSTIPATION
     Dosage: UNK
  9. VITAMIN C [Concomitant]
     Indication: VITAMIN SUPPLEMENTATION
     Dosage: UNK, DAILY
     Dates: start: 20091012
  10. MIRALAX [Concomitant]
     Indication: CONSTIPATION
     Dosage: 17 G, PRN

REACTIONS (2)
  - CATARACT [None]
  - HYPERGLYCAEMIA [None]
